FAERS Safety Report 22153091 (Version 1)
Quarter: 2023Q1

REPORT INFORMATION
  Report Type: Spontaneous
  Country: US (occurrence: None)
  Receive Date: 20230329
  Receipt Date: 20230329
  Transmission Date: 20230418
  Serious: No
  Sender: FDA-Public Use
  Company Number: None

PATIENT
  Age: 59 Year
  Sex: Female

DRUGS (2)
  1. COSENTYX [Suspect]
     Active Substance: SECUKINUMAB
     Indication: Rheumatoid arthritis
     Dosage: OTHER FREQUENCY : WKLYFOR5WKSASDIR;?
     Route: 058
     Dates: start: 202106
  2. COSENTYX [Suspect]
     Active Substance: SECUKINUMAB
     Indication: Ankylosing spondylitis

REACTIONS (1)
  - Nasopharyngitis [None]
